FAERS Safety Report 18491507 (Version 1)
Quarter: 2020Q4

REPORT INFORMATION
  Report Type: Spontaneous
  Country: US (occurrence: US)
  Receive Date: 20201111
  Receipt Date: 20201111
  Transmission Date: 20210114
  Serious: Yes (Hospitalization)
  Sender: FDA-Public Use
  Company Number: US-TEVA-2020-US-1847818

PATIENT
  Age: 43 Year
  Sex: Female
  Weight: 73 kg

DRUGS (23)
  1. PACLITAXEL. [Suspect]
     Active Substance: PACLITAXEL
     Indication: TRIPLE NEGATIVE BREAST CANCER
     Dosage: DAY 1 OF 12 WEEKLY CYCLES DURING CHEMO SEGMENT 1 (80 MG/M2,1 IN 1 WEEK)
     Route: 042
     Dates: start: 20160316, end: 20160603
  2. PROCHLORPERAZINE. [Concomitant]
     Active Substance: PROCHLORPERAZINE
     Indication: VOMITING
  3. IMODIUM [Concomitant]
     Active Substance: LOPERAMIDE HYDROCHLORIDE
     Indication: DIARRHOEA
     Dosage: DOSE: 2 MG, AS REQUIRED
     Route: 048
     Dates: start: 20160323
  4. TRAZODONE [Concomitant]
     Active Substance: TRAZODONE HYDROCHLORIDE
     Indication: ANXIETY
  5. ONDANSETRON [Concomitant]
     Active Substance: ONDANSETRON
     Indication: NAUSEA
     Dosage: 16 MILLIGRAM DAILY;
     Route: 048
     Dates: start: 20160316
  6. HYDROCODONE/ACETAMINIOPHEN [Concomitant]
     Indication: PAIN
     Dosage: 15 MILLIGRAM DAILY;
     Route: 048
     Dates: start: 20160609, end: 20160621
  7. CARBOPLATIN. [Suspect]
     Active Substance: CARBOPLATIN
     Indication: TRIPLE NEGATIVE BREAST CANCER
     Dosage: DAY 1 OF FOUR 21-DAY CYCLES DURING CHEMO SEGMENT 1 (1 IN 21 DAYS)
     Route: 042
     Dates: start: 20160316, end: 20160520
  8. SODIUM CHLORIDE. [Concomitant]
     Active Substance: SODIUM CHLORIDE
     Indication: PROPHYLAXIS
     Dosage: 50 ML,AS REQUIRED
     Route: 042
     Dates: start: 20160316
  9. TOBRAMYCIN. [Concomitant]
     Active Substance: TOBRAMYCIN
     Indication: CONJUNCTIVITIS
     Dosage: 1 MILLIGRAM DAILY;
     Route: 061
     Dates: start: 20160609, end: 20160621
  10. ABT-888 [Suspect]
     Active Substance: VELIPARIB
     Indication: TRIPLE NEGATIVE BREAST CANCER
     Dosage: THROUGH CHEMOTHERAPY SEGMENT 1 (2 IN 1 DAYS)
     Route: 048
     Dates: start: 20160316, end: 20160519
  11. DOXORUBICIN [Suspect]
     Active Substance: DOXORUBICIN
     Indication: TRIPLE NEGATIVE BREAST CANCER
     Dosage: DAY 01 OF FOUR 21 DAYS CYCLES DURING CHEMO SGMT2 (60 MG/M2,1 IN 21 DAYS)
     Route: 042
     Dates: start: 20160610
  12. DEXAMETHASONE. [Concomitant]
     Active Substance: DEXAMETHASONE
     Indication: PROPHYLAXIS OF NAUSEA AND VOMITING
     Dosage: 8 MILLIGRAM DAILY;
     Route: 048
     Dates: start: 20160316
  13. HEPARIN [Concomitant]
     Active Substance: HEPARIN SODIUM
     Indication: PROPHYLAXIS
     Dosage: GIVEN INTRACATHETER ROUTE (500 MG,AS REQUIRED)
     Dates: start: 20160316
  14. RANITIDINE. [Concomitant]
     Active Substance: RANITIDINE
     Indication: PROPHYLAXIS
     Dosage: DOSE: 50 MG, AS REQUIRED
     Route: 042
     Dates: start: 20160316
  15. CYCLOPHOSPHAMIDE. [Suspect]
     Active Substance: CYCLOPHOSPHAMIDE
     Indication: TRIPLE NEGATIVE BREAST CANCER
     Dosage: DAY 01 OF FOUR 21 DAY CYCLES DURING CHEMO SGMT2 (600 MG/M2,1 IN 21 DAYS)
     Route: 042
     Dates: start: 20160610
  16. TRAMADOL. [Concomitant]
     Active Substance: TRAMADOL
     Indication: PAIN
     Dosage: 50 MG,AS REQUIRED
     Route: 048
     Dates: start: 20160316
  17. PROCHLORPERAZINE. [Concomitant]
     Active Substance: PROCHLORPERAZINE
     Indication: NAUSEA
     Dosage: (10 MG,AS REQUIRED)
     Route: 048
     Dates: start: 20160316
  18. DIPHENHYDRAMINE. [Concomitant]
     Active Substance: DIPHENHYDRAMINE
     Indication: PROPHYLAXIS
     Dosage: 25 MILLIGRAM/MILLILITERS, AS REQUIRED
     Route: 042
     Dates: start: 20160316
  19. TRAZODONE [Concomitant]
     Active Substance: TRAZODONE HYDROCHLORIDE
     Indication: INSOMNIA
     Dosage: 50 MILLIGRAM DAILY; AT BEDTIME
     Route: 048
     Dates: start: 20160418
  20. MAGNESIUM OXIDE. [Concomitant]
     Active Substance: MAGNESIUM OXIDE
     Indication: HYPOMAGNESAEMIA
     Dosage: 400 MILLIGRAM DAILY;
     Route: 048
     Dates: start: 20160520
  21. POTASSIUM CHLORIDE. [Concomitant]
     Active Substance: POTASSIUM CHLORIDE
     Indication: HYPOKALAEMIA
     Dosage: 40 MILLIEQUIVALENTS DAILY;
     Route: 048
     Dates: start: 20160610, end: 20160621
  22. HYDROXYZINE [Concomitant]
     Active Substance: HYDROXYZINE HYDROCHLORIDE
     Indication: PRURITUS
     Dosage: 75 MILLIGRAM DAILY;
     Route: 048
     Dates: start: 20160427
  23. LORAZEPAM. [Concomitant]
     Active Substance: LORAZEPAM
     Indication: PROPHYLAXIS
     Dosage: 1 MG,AS REQUIRED
     Route: 048
     Dates: start: 20160316

REACTIONS (3)
  - Febrile neutropenia [Recovered/Resolved]
  - Neutropenia [Recovered/Resolved]
  - Anaemia [Recovered/Resolved]

NARRATIVE: CASE EVENT DATE: 20160618
